FAERS Safety Report 4763954-X (Version None)
Quarter: 2005Q3

REPORT INFORMATION
  Report Type: 
  Country: None (occurrence: None)
  Receive Date: 20050906
  Receipt Date: 20050818
  Transmission Date: 20060218
  Serious: Yes (Other)
  Sender: FDA-Public Use
  Company Number: 2005US001077

PATIENT
  Age: 75 Year
  Sex: Female
  Weight: 70.5 kg

DRUGS (15)
  1. ADENOSCAN [Suspect]
     Indication: SCAN MYOCARDIAL PERFUSION
     Dosage: 59.20 MG, TOTAL DOSE, IV NOS
     Route: 042
     Dates: start: 20050804, end: 20050804
  2. COUMADIN [Concomitant]
  3. ACTONEL [Concomitant]
  4. PROTONIX [Concomitant]
  5. ZOCOR [Concomitant]
  6. ZETIA [Concomitant]
  7. DIOVAN [Concomitant]
  8. ASPIRIN [Concomitant]
  9. LEVOFIL [Concomitant]
  10. LASIX (FUROSEMIDE, FUROSEMIDE SODIUM) [Concomitant]
  11. ULTRACET [Concomitant]
  12. LEVSIN (HYOSCYAMINE SULFATE) [Concomitant]
  13. BENADRYL (SODIUM CITRATE, AMMONIUM CHLORIDE) [Concomitant]
  14. ZYRTEC [Concomitant]
  15. HYDROCHLOROTHIAZIDE [Concomitant]

REACTIONS (9)
  - ASTHENIA [None]
  - BLOOD PRESSURE INCREASED [None]
  - CHEST DISCOMFORT [None]
  - CHEST PAIN [None]
  - CHILLS [None]
  - HEART RATE INCREASED [None]
  - ISCHAEMIA [None]
  - SENSATION OF HEAVINESS [None]
  - TREMOR [None]
